FAERS Safety Report 9925936 (Version 3)
Quarter: 2014Q1

REPORT INFORMATION
  Report Type: Spontaneous
  Country: FI (occurrence: FI)
  Receive Date: 20140226
  Receipt Date: 20140326
  Transmission Date: 20141002
  Serious: Yes (Other)
  Sender: FDA-Public Use
  Company Number: FI-PFIZER INC-2014030406

PATIENT
  Age: 53 Year
  Sex: Female

DRUGS (1)
  1. LYRICA [Suspect]
     Indication: NEURALGIA
     Dosage: 300-450 MG, DAILY

REACTIONS (26)
  - Lower limb fracture [Unknown]
  - Dizziness [Unknown]
  - Memory impairment [Unknown]
  - Hypothyroidism [Not Recovered/Not Resolved]
  - Local swelling [Unknown]
  - Weight increased [Unknown]
  - Dry skin [Unknown]
  - Muscular weakness [Unknown]
  - Dysuria [Unknown]
  - Emotional distress [Unknown]
  - Anger [Unknown]
  - Mucosal dryness [Unknown]
  - Dry eye [Unknown]
  - Dry mouth [Unknown]
  - Peripheral coldness [Unknown]
  - Vertigo [Unknown]
  - Skin wound [Unknown]
  - Diarrhoea [Unknown]
  - Vision blurred [Unknown]
  - Tenosynovitis [Unknown]
  - Abdominal pain upper [Unknown]
  - Delusion [Unknown]
  - Fluid retention [Unknown]
  - Cholelithiasis [Unknown]
  - Inflammation [Unknown]
  - Derealisation [Unknown]
